FAERS Safety Report 9520031 (Version 4)
Quarter: 2013Q4

REPORT INFORMATION
  Report Type: Report from Study
  Country: US (occurrence: US)
  Receive Date: 20130912
  Receipt Date: 20131203
  Transmission Date: 20140711
  Serious: Yes (Hospitalization, Other)
  Sender: FDA-Public Use
  Company Number: US-BAYER-2013-101284

PATIENT
  Age: 58 Year
  Sex: Male

DRUGS (1)
  1. NEXAVAR [Suspect]
     Indication: HEPATIC CANCER
     Dosage: 400 MG, BID
     Route: 048
     Dates: start: 201308

REACTIONS (8)
  - Herpes zoster [None]
  - Haematochezia [None]
  - Dysphonia [None]
  - Diarrhoea [None]
  - Blister [None]
  - Headache [None]
  - Blister [None]
  - Rash generalised [None]
